FAERS Safety Report 20526865 (Version 1)
Quarter: 2022Q1

REPORT INFORMATION
  Report Type: Spontaneous
  Country: US (occurrence: None)
  Receive Date: 20220227
  Receipt Date: 20220227
  Transmission Date: 20220423
  Serious: Yes (Other)
  Sender: FDA-Public Use
  Company Number: None

PATIENT
  Age: 32 Year
  Sex: Female
  Weight: 72.57 kg

DRUGS (1)
  1. SKYLA [Suspect]
     Active Substance: LEVONORGESTREL

REACTIONS (13)
  - Complication associated with device [None]
  - Depression [None]
  - Feeling abnormal [None]
  - Amnesia [None]
  - Dysarthria [None]
  - Arthralgia [None]
  - Libido decreased [None]
  - Dyspareunia [None]
  - Ovarian cyst [None]
  - Adnexa uteri pain [None]
  - Swelling face [None]
  - Joint dislocation [None]
  - Migraine [None]
